FAERS Safety Report 9356690 (Version 1)
Quarter: 2013Q2

REPORT INFORMATION
  Report Type: Spontaneous
  Country: US (occurrence: US)
  Receive Date: 20130619
  Receipt Date: 20130619
  Transmission Date: 20140414
  Serious: No
  Sender: FDA-Public Use
  Company Number: US-009507513-1306USA006525

PATIENT
  Age: 38 Year
  Sex: Female

DRUGS (2)
  1. NASONEX [Suspect]
     Indication: HYPERSENSITIVITY
     Dosage: 50 MCG, 2 SPRAYS IN EACH NOSTRIL BID
     Route: 045
     Dates: start: 201305
  2. NASONEX [Suspect]
     Dosage: 50 MCG, 2 SPRAYS IN EACH NOSTRIL BID
     Route: 045
     Dates: start: 201306

REACTIONS (5)
  - Fatigue [Recovering/Resolving]
  - Fatigue [Not Recovered/Not Resolved]
  - Feeling abnormal [Recovering/Resolving]
  - Feeling abnormal [Not Recovered/Not Resolved]
  - Overdose [Unknown]
